FAERS Safety Report 5564160-1 (Version None)
Quarter: 2007Q4

REPORT INFORMATION
  Report Type: 
  Country: None (occurrence: None)
  Receive Date: 20071217
  Receipt Date: 20071205
  Transmission Date: 20080405
  Serious: Yes (Hospitalization)
  Sender: FDA-Public Use
  Company Number: US-PFIZER INC-2007104168

PATIENT
  Sex: Female
  Weight: 104.5 kg

DRUGS (4)
  1. CHANTIX [Suspect]
     Indication: SMOKING CESSATION THERAPY
     Route: 048
     Dates: start: 20070923, end: 20071127
  2. EFFEXOR [Concomitant]
  3. ZANTAC [Concomitant]
  4. VITAMIN CAP [Concomitant]

REACTIONS (8)
  - ANGER [None]
  - ANXIETY [None]
  - EMOTIONAL DISORDER [None]
  - INAPPROPRIATE AFFECT [None]
  - INSOMNIA [None]
  - IRRITABILITY [None]
  - MENTAL DISORDER [None]
  - PNEUMONIA [None]
